FAERS Safety Report 8988310 (Version 1)
Quarter: 2012Q4

REPORT INFORMATION
  Report Type: 
  Country: US (occurrence: US)
  Receive Date: 20121227
  Receipt Date: 20121227
  Transmission Date: 20130627
  Serious: No
  Sender: FDA-Public Use
  Company Number: US-B.I. PHARMACEUTICALS,INC./RIDGEFIELD-2012-BI-03142BP

PATIENT
  Age: 60 None
  Sex: Female

DRUGS (2)
  1. SPIRIVA [Suspect]
     Indication: CHRONIC OBSTRUCTIVE PULMONARY DISEASE
     Dosage: 18 mcg
     Route: 055
     Dates: start: 201209
  2. ATENOLOL [Concomitant]
     Indication: HYPERTENSION
     Dosage: 100 mg
     Route: 048

REACTIONS (2)
  - Cough [Not Recovered/Not Resolved]
  - Product quality issue [Recovered/Resolved]
